FAERS Safety Report 5714103-2 (Version None)
Quarter: 2008Q2

REPORT INFORMATION
  Report Type: 
  Country: None (occurrence: None)
  Receive Date: 20080422
  Receipt Date: 20080422
  Transmission Date: 20081010
  Serious: Yes (Other)
  Sender: FDA-Public Use
  Company Number: None

PATIENT
  Sex: Female
  Weight: 58.9676 kg

DRUGS (1)
  1. LAMISIL [Suspect]
     Indication: ONYCHOMYCOSIS
     Dosage: 1 250 MG TABLET 1 X DAILY PO
     Route: 048
     Dates: start: 20080101

REACTIONS (7)
  - AMNESIA [None]
  - ANOREXIA [None]
  - COGNITIVE DISORDER [None]
  - DIARRHOEA [None]
  - DISTURBANCE IN ATTENTION [None]
  - LETHARGY [None]
  - NAUSEA [None]
